FAERS Safety Report 8623293-3 (Version None)
Quarter: 2012Q3

REPORT INFORMATION
  Report Type: 
  Country: None (occurrence: None)
  Receive Date: 20120827
  Receipt Date: 20120823
  Transmission Date: 20120928
  Serious: Yes (Death)
  Sender: FDA-Public Use
  Company Number: US-B.I. PHARMACEUTICALS,INC./RIDGEFIELD-2012-BP-20721BP

PATIENT
  Age: 91 Year
  Sex: Female

DRUGS (4)
  1. DILTIAZEM [Concomitant]
     Indication: ARRHYTHMIA
  2. PRADAXA [Suspect]
     Indication: ATRIAL FIBRILLATION
     Dosage: 300 MG
     Route: 048
  3. AMIODARONE HCL [Concomitant]
     Indication: ARRHYTHMIA
  4. BACTRIM [Concomitant]
     Indication: URINARY TRACT INFECTION

REACTIONS (1)
  - GASTROINTESTINAL HAEMORRHAGE [None]
